FAERS Safety Report 16087261 (Version 1)
Quarter: 2019Q1

REPORT INFORMATION
  Report Type: Other
  Country: US (occurrence: FR)
  Receive Date: 20190319
  Receipt Date: 20190319
  Transmission Date: 20190418
  Serious: Yes (Other)
  Sender: FDA-Public Use
  Company Number: US-MACLEODS PHARMACEUTICALS US LTD-MAC2019020501

PATIENT

DRUGS (5)
  1. RITONAVIR. [Suspect]
     Active Substance: RITONAVIR
     Indication: HIV INFECTION
     Dosage: UNK, 1 COURCE, DURING 1 TRIMESTER, NORVIR, RTV
     Route: 048
     Dates: start: 20160501, end: 20170129
  2. NEVIRAPINE. [Suspect]
     Active Substance: NEVIRAPINE
     Indication: HIV INFECTION
     Dosage: UNK, 1 COURCE
     Route: 048
  3. ABACAVIR/LAMIVUDINE [Suspect]
     Active Substance: ABACAVIR\LAMIVUDINE
     Indication: HIV INFECTION
     Dosage: UNK, 1 COURCE, DURING 1 TRIMESTER, EPZICOM, KIVEXA, EPZ
     Route: 048
     Dates: start: 20160501, end: 20170129
  4. ATAZANAVIR SULFATE. [Suspect]
     Active Substance: ATAZANAVIR SULFATE
     Indication: HIV INFECTION
     Dosage: UNK, ATV, REYATAZ,1 COURCE, DURING 1 TRIMESTER
     Route: 048
     Dates: start: 20160501, end: 20170129
  5. DARUNAVIR [Suspect]
     Active Substance: DARUNAVIR
     Indication: HIV INFECTION
     Dosage: UNK, 1 COURCE, DURING 1 TRIMESTER, PREZISTA DRV
     Route: 048
     Dates: start: 20160501, end: 20170129

REACTIONS (1)
  - Maternal exposure during pregnancy [Unknown]
